FAERS Safety Report 18754377 (Version 2)
Quarter: 2021Q1

REPORT INFORMATION
  Report Type: Other
  Country: CA (occurrence: CA)
  Receive Date: 20210119
  Receipt Date: 20210302
  Transmission Date: 20210419
  Serious: Yes (Other)
  Sender: FDA-Public Use
  Company Number: CA-CELLTRION INC.-2021CA000268

PATIENT

DRUGS (16)
  1. BENADRYL [Concomitant]
     Active Substance: DIPHENHYDRAMINE HYDROCHLORIDE
     Indication: PREMEDICATION
     Dosage: 50 MG
     Route: 048
  2. ACETAMINOPHEN. [Concomitant]
     Active Substance: ACETAMINOPHEN
     Indication: PREMEDICATION
     Dosage: 650 MG
     Route: 048
  3. PREDNISONE. [Concomitant]
     Active Substance: PREDNISONE
  4. SEPTRA [Concomitant]
     Active Substance: SULFAMETHOXAZOLE\TRIMETHOPRIM
     Indication: PROPHYLAXIS
  5. METHOTREXATE. [Concomitant]
     Active Substance: METHOTREXATE
     Route: 037
  6. TYLENOL [Concomitant]
     Active Substance: ACETAMINOPHEN
     Indication: PREMEDICATION
     Dosage: 650 MG
     Route: 048
  7. RITUXIMAB (UNKNOWN) [Suspect]
     Active Substance: RITUXIMAB
     Indication: GRANULOMATOSIS WITH POLYANGIITIS
     Dosage: 1000 MG
     Route: 042
  8. LEFLUNOMIDE. [Concomitant]
     Active Substance: LEFLUNOMIDE
  9. VENTOLIN [Concomitant]
     Active Substance: ALBUTEROL SULFATE
  10. FOLIC ACID. [Concomitant]
     Active Substance: FOLIC ACID
  11. IMMUNOGLOBULIN HUMAN [Concomitant]
     Active Substance: HUMAN IMMUNOGLOBULIN G
     Dosage: UNK, 1 EVERY 1 MONTH
     Route: 065
  12. METHYLPREDNISOLONE SODIUM SUCCINATE. [Concomitant]
     Active Substance: METHYLPREDNISOLONE SODIUM SUCCINATE
     Indication: PREMEDICATION
     Dosage: 100 MG
     Route: 042
  13. DIPHENHYDRAMINE HYDROCHLORIDE. [Concomitant]
     Active Substance: DIPHENHYDRAMINE HYDROCHLORIDE
     Indication: PREMEDICATION
     Dosage: 50 MG
     Route: 048
  14. METHYLPREDNISOLONE. [Concomitant]
     Active Substance: METHYLPREDNISOLONE
     Indication: PREMEDICATION
     Dosage: 100 MG
     Route: 042
  15. RITUXIMAB (UNKNOWN) [Suspect]
     Active Substance: RITUXIMAB
     Indication: LARYNGEAL STENOSIS
     Dosage: UNK
     Route: 042
  16. RITUXIMAB (UNKNOWN) [Suspect]
     Active Substance: RITUXIMAB
     Indication: ANTI-NEUTROPHIL CYTOPLASMIC ANTIBODY POSITIVE VASCULITIS
     Dosage: 1000 MG EVERY 4 MONTHS
     Route: 042

REACTIONS (4)
  - Catheter site pain [Recovered/Resolved]
  - Catheter site pruritus [Recovered/Resolved]
  - Off label use [Unknown]
  - Vascular device infection [Recovered/Resolved]
